FAERS Safety Report 7526753-1 (Version None)
Quarter: 2011Q2

REPORT INFORMATION
  Report Type: 
  Country: None (occurrence: None)
  Receive Date: 20110606
  Receipt Date: 20110531
  Transmission Date: 20111010
  Serious: Yes (Other)
  Sender: FDA-Public Use
  Company Number: BR-SANOFI-AVENTIS-2011SA034417

PATIENT
  Sex: Female

DRUGS (1)
  1. LANTUS [Suspect]
     Dates: start: 20070101

REACTIONS (1)
  - ARTHROPATHY [None]
